FAERS Safety Report 8496181-3 (Version None)
Quarter: 2012Q3

REPORT INFORMATION
  Report Type: 
  Country: None (occurrence: None)
  Receive Date: 20120709
  Receipt Date: 20120706
  Transmission Date: 20120928
  Serious: Yes (Death)
  Sender: FDA-Public Use
  Company Number: PHHY2012BR058256

PATIENT
  Age: 80 Year
  Sex: Male

DRUGS (6)
  1. OMEPRAZOLE [Suspect]
     Indication: ABDOMINAL DISCOMFORT
     Dosage: 1 DF, AT NIGHT
     Route: 048
  2. SOMALGIN CARDIO [Concomitant]
     Indication: CARDIAC DISORDER
     Dosage: 81 MG
  3. ASPIRIN [Concomitant]
  4. SIMVASTATIN [Suspect]
     Indication: BLOOD CHOLESTEROL
     Dosage: 1 DF, AT NIGHT
     Route: 048
     Dates: start: 20110414
  5. ISOSORBIDE MONONITRATE [Concomitant]
     Indication: CARDIAC DISORDER
     Dosage: 20 MG
  6. RANITIDINE HCL [Suspect]
     Indication: ABDOMINAL DISCOMFORT
     Dosage: 1 DF, AT NIGHT
     Route: 048
     Dates: start: 20110414

REACTIONS (3)
  - PNEUMONIA [None]
  - ORGAN FAILURE [None]
  - COUGH [None]
